FAERS Safety Report 25118588 (Version 1)
Quarter: 2025Q1

REPORT INFORMATION
  Report Type: Spontaneous
  Country: US (occurrence: US)
  Receive Date: 20250325
  Receipt Date: 20250325
  Transmission Date: 20250409
  Serious: No
  Sender: IPSEN BIOPHARMACEUTICALS, INC.
  Company Number: US-IPSEN Group, Research and Development-2025-06784

PATIENT
  Age: 5 Year
  Sex: Female
  Weight: 14.52 kg

DRUGS (17)
  1. BYLVAY [Suspect]
     Active Substance: ODEVIXIBAT
     Indication: Gastroenteritis
     Route: 048
     Dates: start: 20241204
  2. BYLVAY [Suspect]
     Active Substance: ODEVIXIBAT
     Indication: Gastrointestinal inflammation
  3. BYLVAY [Suspect]
     Active Substance: ODEVIXIBAT
     Indication: Colitis
  4. BYLVAY [Suspect]
     Active Substance: ODEVIXIBAT
     Indication: Off label use
  5. TYLENOL [Concomitant]
     Active Substance: ACETAMINOPHEN
  6. BENADRYL ALLERGY [Concomitant]
     Active Substance: DIPHENHYDRAMINE HYDROCHLORIDE
  7. PEDIALYTE [Concomitant]
     Active Substance: POTASSIUM CITRATE\SODIUM CITRATE\ZINC
  8. PREDNISOLONE [Concomitant]
     Active Substance: PREDNISOLONE
  9. COPPER GLUCONATE [Concomitant]
     Active Substance: COPPER GLUCONATE
  10. FERROUS SULFATE [Concomitant]
     Active Substance: FERROUS SULFATE
  11. SULFASALAZINE [Concomitant]
     Active Substance: SULFASALAZINE
  12. PHOSPHORUS;POTASSIUM;SODIUM [Concomitant]
  13. CITRIC ACID [Concomitant]
     Active Substance: CITRIC ACID MONOHYDRATE
  14. FAMOTIDINE [Concomitant]
     Active Substance: FAMOTIDINE
  15. TACROLIMUS [Concomitant]
     Active Substance: TACROLIMUS
  16. URSODIOL [Concomitant]
     Active Substance: URSODIOL
  17. ONDANSETRON HYDROCHLORIDE [Concomitant]
     Active Substance: ONDANSETRON HYDROCHLORIDE

REACTIONS (2)
  - Diarrhoea [Not Recovered/Not Resolved]
  - Off label use [Unknown]

NARRATIVE: CASE EVENT DATE: 20241204
